FAERS Safety Report 5822740-X (Version None)
Quarter: 2008Q3

REPORT INFORMATION
  Report Type: 
  Country: None (occurrence: None)
  Receive Date: 20080725
  Receipt Date: 20070924
  Transmission Date: 20090109
  Serious: No
  Sender: FDA-Public Use
  Company Number: US-AMGEN-KDL244536

PATIENT
  Sex: Male

DRUGS (4)
  1. EPOGEN [Suspect]
     Indication: DIALYSIS
     Dates: start: 20070126
  2. EPOGEN [Suspect]
     Indication: HEPATITIS C
  3. RIBAVIRIN [Concomitant]
  4. INTERFERON [Concomitant]

REACTIONS (4)
  - SERUM FERRITIN INCREASED [None]
  - THERAPEUTIC RESPONSE DECREASED [None]
  - TRANSFERRIN SATURATION INCREASED [None]
  - WHITE BLOOD CELL COUNT DECREASED [None]
